FAERS Safety Report 4612516-3 (Version None)
Quarter: 2005Q1

REPORT INFORMATION
  Report Type: 
  Country: None (occurrence: None)
  Receive Date: 20050316
  Receipt Date: 20050302
  Transmission Date: 20050727
  Serious: Yes (Other)
  Sender: FDA-Public Use
  Company Number: USA050392231

PATIENT
  Sex: Female

DRUGS (1)
  1. HUMULIN N [Suspect]
     Indication: DIABETES MELLITUS

REACTIONS (3)
  - BLINDNESS UNILATERAL [None]
  - NEOPLASM MALIGNANT [None]
  - TRIPLE VESSEL BYPASS GRAFT [None]
